FAERS Safety Report 9064538 (Version 1)
Quarter: 2013Q1

REPORT INFORMATION
  Report Type: Spontaneous
  Country: JP (occurrence: JP)
  Receive Date: 20130130
  Receipt Date: 20130130
  Transmission Date: 20140127
  Serious: Yes (Hospitalization)
  Sender: FDA-Public Use
  Company Number: JP-TEVA-382430ISR

PATIENT
  Age: 2 Decade
  Sex: Male
  Weight: 45 kg

DRUGS (4)
  1. CEFTRIAXONE [Suspect]
     Indication: APPENDICITIS
     Dosage: 2 GRAM DAILY;
     Route: 042
  2. CEFOTIAM [Concomitant]
     Route: 065
  3. CLARITHROMYCIN [Concomitant]
     Route: 065
  4. CEFCAPENE PIVOXIL [Concomitant]
     Route: 065

REACTIONS (1)
  - Tubulointerstitial nephritis [Recovered/Resolved]
